FAERS Safety Report 10721486 (Version 2)
Quarter: 2015Q2

REPORT INFORMATION
  Report Type: Spontaneous
  Country: US (occurrence: US)
  Receive Date: 20150119
  Receipt Date: 20150406
  Transmission Date: 20150821
  Serious: Yes (Hospitalization)
  Sender: FDA-Public Use
  Company Number: US-BAYER-2015-006340

PATIENT
  Age: 31 Year
  Sex: Female

DRUGS (1)
  1. MIRENA [Suspect]
     Active Substance: LEVONORGESTREL
     Indication: CONTRACEPTION
     Dosage: 20 MCG/24HR, CONT
     Route: 015
     Dates: start: 20090217, end: 20140814

REACTIONS (13)
  - Abdominal pain [None]
  - Feeling abnormal [None]
  - Embedded device [None]
  - Injury [None]
  - Infertility [None]
  - Device use error [None]
  - Dyspareunia [None]
  - Depression [None]
  - Anxiety [None]
  - Device issue [None]
  - Pelvic pain [None]
  - Abdominal pain lower [None]
  - Medical device pain [None]

NARRATIVE: CASE EVENT DATE: 2013
